FAERS Safety Report 19510779 (Version 8)
Quarter: 2022Q4

REPORT INFORMATION
  Report Type: Report from Study
  Country: JP (occurrence: JP)
  Receive Date: 20210709
  Receipt Date: 20221212
  Transmission Date: 20230112
  Serious: Yes (Death)
  Sender: FDA-Public Use
  Company Number: JP-JNJFOC-20210610602

PATIENT
  Age: 70 Year
  Sex: Male
  Weight: 79 kg

DRUGS (23)
  1. TREMFYA [Suspect]
     Active Substance: GUSELKUMAB
     Indication: Psoriatic arthropathy
     Dosage: EVERY 4 TO 8 WEEKS
     Route: 058
     Dates: start: 20181016, end: 20181016
  2. TREMFYA [Suspect]
     Active Substance: GUSELKUMAB
     Indication: Psoriatic arthropathy
     Dosage: EVERY 4 TO 8 WEEKS
     Route: 058
     Dates: start: 20181113, end: 20181113
  3. TREMFYA [Suspect]
     Active Substance: GUSELKUMAB
     Indication: Psoriatic arthropathy
     Dosage: EVERY 4 TO 8 WEEKS
     Route: 058
     Dates: start: 20190108, end: 20190108
  4. TREMFYA [Suspect]
     Active Substance: GUSELKUMAB
     Indication: Psoriatic arthropathy
     Dosage: EVERY 4 TO 8 WEEKS
     Route: 058
     Dates: start: 20190305, end: 20190305
  5. TREMFYA [Suspect]
     Active Substance: GUSELKUMAB
     Indication: Psoriatic arthropathy
     Dosage: EVERY 4 TO 8 WEEKS
     Route: 058
     Dates: start: 20190507, end: 20190507
  6. TREMFYA [Suspect]
     Active Substance: GUSELKUMAB
     Indication: Psoriatic arthropathy
     Dosage: EVERY 4 TO 8 WEEKS
     Route: 058
     Dates: start: 20190702, end: 20190702
  7. TREMFYA [Suspect]
     Active Substance: GUSELKUMAB
     Indication: Psoriatic arthropathy
     Dosage: EVERY 4 TO 8 WEEKS
     Route: 058
     Dates: start: 20190903, end: 20190903
  8. RABEPRAZOLE SODIUM [Concomitant]
     Active Substance: RABEPRAZOLE SODIUM
     Indication: Gastrooesophageal reflux disease
     Route: 048
  9. MITIGLINIDE [Concomitant]
     Active Substance: MITIGLINIDE
     Indication: Diabetes mellitus
     Route: 048
  10. AVAPRO [Concomitant]
     Active Substance: IRBESARTAN
     Indication: Hypertension
     Route: 048
  11. AMLODIPINE [Concomitant]
     Active Substance: AMLODIPINE BESYLATE
     Indication: Hypertension
     Dosage: PERORAL MEDICINE
     Route: 048
  12. ALLOPURINOL [Concomitant]
     Active Substance: ALLOPURINOL
     Indication: Hyperuricaemia
     Route: 048
  13. LIMAPROST [Concomitant]
     Active Substance: LIMAPROST
     Indication: Lumbar spinal stenosis
     Route: 048
  14. REBAMIPIDE [Concomitant]
     Active Substance: REBAMIPIDE
     Indication: Chronic gastritis
     Dosage: PERORAL MEDICINE
     Route: 048
  15. CELECOXIB [Concomitant]
     Active Substance: CELECOXIB
     Indication: Lumbar spinal stenosis
     Route: 048
  16. MYONABASE [Concomitant]
     Indication: Lumbar spinal stenosis
     Route: 048
  17. KETOPROFEN [Concomitant]
     Active Substance: KETOPROFEN
     Indication: Lumbar spinal stenosis
     Dosage: Q.S.,P.R.N
     Route: 003
  18. SKYRIZI [Concomitant]
     Active Substance: RISANKIZUMAB-RZAA
     Indication: Psoriatic arthropathy
     Route: 058
     Dates: start: 20191101, end: 20191101
  19. SKYRIZI [Concomitant]
     Active Substance: RISANKIZUMAB-RZAA
     Indication: Nail psoriasis
  20. GEMCITABINE HYDROCHLORIDE [Concomitant]
     Active Substance: GEMCITABINE HYDROCHLORIDE
     Indication: Bile duct cancer
     Route: 065
     Dates: start: 20191225, end: 20200427
  21. GEMCITABINE HYDROCHLORIDE [Concomitant]
     Active Substance: GEMCITABINE HYDROCHLORIDE
     Route: 065
     Dates: start: 20200608, end: 20200608
  22. CISPLATIN [Concomitant]
     Active Substance: CISPLATIN
     Indication: Bile duct cancer
     Route: 065
     Dates: start: 20191225, end: 20200427
  23. GIMERACIL\OTERACIL\TEGAFUR [Concomitant]
     Active Substance: GIMERACIL\OTERACIL\TEGAFUR
     Indication: Bile duct cancer
     Route: 048
     Dates: start: 20200608, end: 20201130

REACTIONS (2)
  - Bile duct cancer [Fatal]
  - Hyperplastic cholecystopathy [Not Recovered/Not Resolved]

NARRATIVE: CASE EVENT DATE: 20190228
